FAERS Safety Report 5851956-1 (Version None)
Quarter: 2008Q3

REPORT INFORMATION
  Report Type: 
  Country: None (occurrence: None)
  Receive Date: 20080819
  Receipt Date: 20080812
  Transmission Date: 20090109
  Serious: Yes (Hospitalization)
  Sender: FDA-Public Use
  Company Number: 2008AL006312

PATIENT
  Sex: Female

DRUGS (1)
  1. DIGOXIN [Suspect]
     Indication: CARDIAC DISORDER
     Dates: start: 20080401

REACTIONS (7)
  - ANAEMIA [None]
  - CARDIOACTIVE DRUG LEVEL INCREASED [None]
  - COUGH [None]
  - FEELING ABNORMAL [None]
  - HYPERTENSION [None]
  - MUSCLE FATIGUE [None]
  - NAUSEA [None]
